FAERS Safety Report 22187214 (Version 1)
Quarter: 2023Q2

REPORT INFORMATION
  Report Type: Spontaneous
  Country: BR (occurrence: BR)
  Receive Date: 20230407
  Receipt Date: 20230407
  Transmission Date: 20230721
  Serious: Yes (Other)
  Sender: FDA-Public Use
  Company Number: BR-PFIZER INC-202100922722

PATIENT
  Age: 66 Year
  Sex: Female

DRUGS (2)
  1. SUTENT [Suspect]
     Active Substance: SUNITINIB MALATE
     Dosage: UNK
     Dates: start: 2016
  2. SUTENT [Suspect]
     Active Substance: SUNITINIB MALATE
     Dosage: UNK
     Dates: start: 201608, end: 202301

REACTIONS (15)
  - Diabetes mellitus [Unknown]
  - Pain in extremity [Unknown]
  - Hyperkeratosis [Unknown]
  - Mobility decreased [Unknown]
  - Insomnia [Unknown]
  - Diarrhoea [Unknown]
  - Vomiting [Unknown]
  - Pain [Unknown]
  - Neoplasm progression [Unknown]
  - Dry skin [Unknown]
  - Hypersensitivity [Unknown]
  - Limb injury [Unknown]
  - Wound [Unknown]
  - Toxicity to various agents [Unknown]
  - Hypertension [Unknown]

NARRATIVE: CASE EVENT DATE: 20210717
